FAERS Safety Report 6157353-6 (Version None)
Quarter: 2009Q2

REPORT INFORMATION
  Report Type: 
  Country: None (occurrence: None)
  Receive Date: 20090413
  Receipt Date: 20090402
  Transmission Date: 20091009
  Serious: Yes (Death)
  Sender: FDA-Public Use
  Company Number: 2009VX000559

PATIENT
  Sex: Female

DRUGS (1)
  1. FLUCYTOSINE (FLUCYTOSINE) (5 PCT) [Suspect]
     Indication: CEREBRAL ASPERGILLOSIS
     Dosage: ; IV
     Route: 042

REACTIONS (1)
  - DRUG INEFFECTIVE [None]
